FAERS Safety Report 4322985-4 (Version None)
Quarter: 2004Q1

REPORT INFORMATION
  Report Type: 
  Country: None (occurrence: None)
  Receive Date: 20040322
  Receipt Date: 20040315
  Transmission Date: 20041129
  Serious: Yes (Other)
  Sender: FDA-Public Use
  Company Number: US069369

PATIENT
  Age: 50 Year
  Sex: Female
  Weight: 43.6 kg

DRUGS (8)
  1. ARANESP [Suspect]
     Indication: ANAEMIA
     Dosage: 200 MCG, 1 IN 2 WEEKS, SC
     Route: 058
     Dates: start: 20040213, end: 20040213
  2. AZATHIOPRINE [Concomitant]
  3. LISINOPRIL [Concomitant]
  4. ESTROGENS CONJUGATED [Concomitant]
  5. VALDECOXIB [Concomitant]
  6. TETRACYCLINE [Concomitant]
  7. HYDROMORPHONE [Concomitant]
  8. BUPROPION HCL [Concomitant]

REACTIONS (2)
  - HEART RATE INCREASED [None]
  - SWELLING FACE [None]
